FAERS Safety Report 14927185 (Version 2)
Quarter: 2018Q3

REPORT INFORMATION
  Report Type: Spontaneous
  Country: US (occurrence: US)
  Receive Date: 20180523
  Receipt Date: 20180702
  Transmission Date: 20181010
  Serious: Yes (Death, Other)
  Sender: FDA-Public Use
  Company Number: PHHY2018US004925

PATIENT
  Age: 9 Year
  Sex: Female

DRUGS (7)
  1. IBUPROFEN. [Concomitant]
     Active Substance: IBUPROFEN
     Indication: CHEST PAIN
     Route: 065
  2. IBUPROFEN. [Concomitant]
     Active Substance: IBUPROFEN
     Indication: MUSCULOSKELETAL PAIN
  3. IBUPROFEN. [Concomitant]
     Active Substance: IBUPROFEN
     Indication: BACK PAIN
  4. CEFTRIAXONE. [Suspect]
     Active Substance: CEFTRIAXONE
     Indication: ESCHERICHIA URINARY TRACT INFECTION
     Route: 042
  5. CEFTRIAXONE. [Suspect]
     Active Substance: CEFTRIAXONE
     Dosage: 2 G, UNK
     Route: 065
  6. CEFDINIR. [Concomitant]
     Active Substance: CEFDINIR
     Indication: ESCHERICHIA URINARY TRACT INFECTION
     Route: 048
  7. IBUPROFEN. [Concomitant]
     Active Substance: IBUPROFEN
     Indication: PAIN IN EXTREMITY

REACTIONS (27)
  - Nasal flaring [Fatal]
  - Grunting [Fatal]
  - Brain oedema [Fatal]
  - Hepatomegaly [Fatal]
  - Dyspnoea [Fatal]
  - Haemolytic anaemia [Fatal]
  - Pallor [Fatal]
  - Myocardial ischaemia [Fatal]
  - Drug specific antibody [Unknown]
  - Unresponsive to stimuli [Fatal]
  - Disseminated intravascular coagulation [Fatal]
  - Acute kidney injury [Fatal]
  - Hypoxic-ischaemic encephalopathy [Fatal]
  - Oxygen saturation decreased [Fatal]
  - Intracranial pressure increased [Fatal]
  - Hepatic congestion [Fatal]
  - Mental status changes [Fatal]
  - Hypotension [Fatal]
  - Cardiac arrest [Fatal]
  - Brain injury [Fatal]
  - Brain herniation [Fatal]
  - Pulmonary oedema [Fatal]
  - Tachycardia [Fatal]
  - Splenomegaly [Fatal]
  - Chromaturia [Fatal]
  - Shock [Fatal]
  - Multiple organ dysfunction syndrome [Fatal]
